FAERS Safety Report 9147990 (Version 1)
Quarter: 2013Q1

REPORT INFORMATION
  Report Type: Spontaneous
  Country: DE (occurrence: DE)
  Receive Date: 20130307
  Receipt Date: 20130307
  Transmission Date: 20140127
  Serious: Yes (Congenital Anomaly)
  Sender: FDA-Public Use
  Company Number: DE-MYLANLABS-2013S1004250

PATIENT
  Age: 0 Year
  Sex: Female
  Weight: 1.89 kg

DRUGS (6)
  1. MELPERONE [Suspect]
     Dosage: 200 [MG/D ]/ TILL WEEK 5: 200 MG/D; WK 5-7: 100 MG/D; WK 7-28: 50 MG/D, FROM WK 28 ON:25 MG/D
     Route: 064
  2. VENLAFAXINE [Suspect]
     Dosage: 300 [MG/D ]/ TILL WEEK 5: 300 MG/D; WK: 5-16 150 MG/D; WK 16-28: 75 MG/D; FROM WK 28 ON: 37,5 MG/D
     Route: 064
  3. METFORMIN [Suspect]
     Dosage: 1700 [MG/D (2 X 850 MG/D) ]
     Route: 064
  4. FRAGMIN P [Concomitant]
     Dosage: GW 7-34
     Route: 064
  5. KADEFUNGIN [Concomitant]
     Dosage: 3 COURSES: IN MONTH 3, 5 AND 8 (GW 9-32)
     Route: 064
  6. FEMIBION [Concomitant]
     Indication: PROPHYLAXIS OF NEURAL TUBE DEFECT
     Dosage: 0.8 [MG/D ]; GW 5-34
     Route: 064

REACTIONS (11)
  - Fallot^s tetralogy [Recovered/Resolved with Sequelae]
  - Congenital uterine anomaly [Not Recovered/Not Resolved]
  - Anal atresia [Not Recovered/Not Resolved]
  - Congenital absence of bile ducts [Not Recovered/Not Resolved]
  - Persistent cloaca [Not Recovered/Not Resolved]
  - Spine malformation [Not Recovered/Not Resolved]
  - Atrial septal defect [Recovered/Resolved with Sequelae]
  - Right aortic arch [Recovered/Resolved with Sequelae]
  - Persistent left superior vena cava [Recovered/Resolved with Sequelae]
  - Exposure during pregnancy [Unknown]
  - Premature baby [Unknown]
